FAERS Safety Report 10447220 (Version 4)
Quarter: 2014Q3

REPORT INFORMATION
  Report Type: Report from Study
  Country: FR (occurrence: FR)
  Receive Date: 20140911
  Receipt Date: 20140919
  Transmission Date: 20150326
  Serious: Yes (Death, Hospitalization)
  Sender: FDA-Public Use
  Company Number: FR-009507513-1405FRA004140

PATIENT
  Age: 72 Year
  Sex: Male
  Weight: 68 kg

DRUGS (15)
  1. AVODART [Concomitant]
     Active Substance: DUTASTERIDE
     Indication: BENIGN PROSTATIC HYPERPLASIA
     Dosage: TOTAL DAILY DOSE: 1 TABLET, QD
     Route: 048
     Dates: start: 200601
  2. LYRICA [Concomitant]
     Active Substance: PREGABALIN
     Indication: PAIN
     Dosage: 75 MG, BID
     Route: 048
     Dates: start: 20140415, end: 20140430
  3. LACTULOSE. [Concomitant]
     Active Substance: LACTULOSE
     Indication: CONSTIPATION
     Dosage: 0.5 G, BID
     Route: 048
     Dates: start: 20140424
  4. SOLUPRED [Concomitant]
     Active Substance: PREDNISOLONE
     Indication: RECTAL HAEMORRHAGE
     Dosage: 20 MG, BID
     Route: 048
     Dates: start: 20140424, end: 20140429
  5. MOVICOL [Concomitant]
     Active Substance: POLYETHYLENE GLYCOL 3350\POTASSIUM CHLORIDE\SODIUM BICARBONATE\SODIUM CHLORIDE
     Indication: CONSTIPATION
     Dosage: TOTAL DAILY DOSE: 1 BAG, QD
     Route: 048
     Dates: start: 20140415, end: 20140430
  6. MAG 2 [Concomitant]
     Active Substance: MAGNESIUM CHLORIDE
     Indication: HYPOMAGNESAEMIA
     Dosage: DOSE: 0,5 CAPSULE, BID; TOTAL DAILY DOSE: 1 CAPSULE
     Route: 048
     Dates: start: 20140415, end: 20140430
  7. ACTISKENAN [Concomitant]
     Active Substance: MORPHINE SULFATE
     Indication: PAIN
     Route: 048
  8. XANAX [Concomitant]
     Active Substance: ALPRAZOLAM
     Indication: ANXIETY
     Dosage: 1 TABLET, QD
     Route: 048
  9. PEMBROLIZUMAB. [Suspect]
     Active Substance: PEMBROLIZUMAB
     Indication: ADENOCARCINOMA OF COLON
     Dosage: 10 MG/KG, Q2W, DOSE 26.8, ALSO REPORTED AS 100 (UNITS NOT REPORTED)
     Route: 042
     Dates: start: 20140416, end: 20140416
  10. PEMBROLIZUMAB. [Suspect]
     Active Substance: PEMBROLIZUMAB
     Indication: RECTAL ADENOCARCINOMA
  11. DIFFU-K [Concomitant]
     Active Substance: POTASSIUM CHLORIDE
     Indication: HYPOKALAEMIA
     Dosage: TOTAL DAILY DOSE: 3 CAPSULE,QD
     Route: 048
     Dates: start: 20140415, end: 20140430
  12. ALDACTONE [Concomitant]
     Active Substance: SPIRONOLACTONE
     Indication: DIURETIC THERAPY
     Dosage: 75 MG, QD
     Route: 048
     Dates: start: 20140424
  13. DOLIPRANE [Concomitant]
     Active Substance: ACETAMINOPHEN
     Indication: ABDOMINAL PAIN
     Dosage: 3 G, QD
     Route: 048
     Dates: start: 200801
  14. ATARAX [Concomitant]
     Active Substance: HYDROXYZINE\HYDROXYZINE HYDROCHLORIDE
     Indication: INSOMNIA
     Dosage: TOTAL DAILY DOSE: 1 CAPSULE, QD
     Route: 048
     Dates: start: 20140415, end: 20140430
  15. DUROGESIC [Concomitant]
     Active Substance: FENTANYL
     Indication: PAIN
     Dosage: 25 MICROGRAM, QD
     Route: 048

REACTIONS (2)
  - Hepatic failure [Not Recovered/Not Resolved]
  - Malignant neoplasm progression [Fatal]

NARRATIVE: CASE EVENT DATE: 20140430
